FAERS Safety Report 21021247 (Version 1)
Quarter: 2022Q2

REPORT INFORMATION
  Report Type: Spontaneous
  Country: JP (occurrence: JP)
  Receive Date: 20220629
  Receipt Date: 20220629
  Transmission Date: 20220721
  Serious: Yes (Other)
  Sender: FDA-Public Use
  Company Number: JP-BAYER-2022A086803

PATIENT
  Age: 77 Year
  Sex: Male
  Weight: 63 kg

DRUGS (2)
  1. XARELTO [Interacting]
     Active Substance: RIVAROXABAN
     Indication: Anticoagulant therapy
     Route: 048
  2. CLOPIDOGREL [Interacting]
     Active Substance: CLOPIDOGREL BISULFATE
     Indication: Anticoagulant therapy

REACTIONS (3)
  - Tumour haemorrhage [Unknown]
  - Blood loss anaemia [Unknown]
  - Labelled drug-drug interaction medication error [Unknown]
